FAERS Safety Report 8969100 (Version 2)
Quarter: 2012Q4

REPORT INFORMATION
  Report Type: 
  Country: US (occurrence: US)
  Receive Date: 20121217
  Receipt Date: 20121228
  Transmission Date: 20130627
  Serious: Yes (Hospitalization)
  Sender: FDA-Public Use
  Company Number: US-PFIZER INC-2012308370

PATIENT
  Age: 62 Year
  Sex: Female
  Weight: 46.9 kg

DRUGS (13)
  1. AXITINIB [Suspect]
     Indication: SQUAMOUS CELL CARCINOMA OF HEAD AND NECK
     Dosage: 10 mg, 2x/day
     Route: 048
     Dates: start: 20120322, end: 20121204
  2. ALPRAZOLAM [Concomitant]
  3. ATENOLOL [Concomitant]
  4. BENADRYL [Concomitant]
  5. MAALOX [Concomitant]
  6. NYSTATIN [Concomitant]
  7. CLONAZEPAM [Concomitant]
  8. FLUOXETINE [Concomitant]
  9. HYDROCHLOROTHIAZIDE [Concomitant]
  10. LEVOTHYROXINE [Concomitant]
  11. MAGNESIUM [Concomitant]
  12. NAPROXEN SODIUM [Concomitant]
  13. SODIUM FLUORIDE [Concomitant]

REACTIONS (2)
  - Oesophageal stenosis [Unknown]
  - Dehydration [Recovered/Resolved]
